FAERS Safety Report 9129491 (Version 2)
Quarter: 2013Q1

REPORT INFORMATION
  Report Type: Spontaneous
  Country: FR (occurrence: FR)
  Receive Date: 20130228
  Receipt Date: 20130319
  Transmission Date: 20140127
  Serious: Yes (Death)
  Sender: FDA-Public Use
  Company Number: FR-GLAXOSMITHKLINE-B0869565A

PATIENT
  Age: 83 Year
  Sex: Male

DRUGS (11)
  1. ARIXTRA [Suspect]
     Indication: MYOCARDIAL INFARCTION
     Dosage: 7.5MG PER DAY
     Route: 058
     Dates: start: 20121214, end: 20121218
  2. KARDEGIC [Suspect]
     Indication: CORONARY ARTERY DISEASE
     Dosage: 75MG PER DAY
     Route: 048
     Dates: start: 20121210, end: 20121218
  3. PLAVIX [Suspect]
     Indication: CORONARY ARTERY DISEASE
     Dosage: 75MG PER DAY
     Route: 048
     Dates: start: 20121208, end: 20121218
  4. AUGMENTIN [Concomitant]
  5. CRESTOR [Concomitant]
     Route: 048
  6. XATRAL [Concomitant]
     Route: 048
  7. DIFFU K [Concomitant]
  8. FLUDEX [Concomitant]
     Route: 048
  9. ZYLORIC [Concomitant]
     Route: 048
  10. EUPANTOL [Concomitant]
     Route: 048
  11. DAFALGAN CODEINE [Concomitant]
     Route: 048

REACTIONS (9)
  - Intra-abdominal haemorrhage [Fatal]
  - Pallor [Unknown]
  - Dizziness [Unknown]
  - Back pain [Unknown]
  - Red blood cell count decreased [Unknown]
  - Hypotension [Unknown]
  - Tachycardia [Unknown]
  - Multi-organ failure [Fatal]
  - Off label use [Unknown]
